FAERS Safety Report 23977469 (Version 1)
Quarter: 2024Q2

REPORT INFORMATION
  Report Type: Spontaneous
  Country: US (occurrence: US)
  Receive Date: 20240614
  Receipt Date: 20240614
  Transmission Date: 20240716
  Serious: Yes (Other)
  Sender: FDA-Public Use
  Company Number: US-Calliditas-2024CAL00993

PATIENT
  Age: 18 Year
  Sex: Male

DRUGS (1)
  1. TARPEYO [Suspect]
     Active Substance: BUDESONIDE
     Indication: IgA nephropathy
     Route: 048
     Dates: start: 20230512

REACTIONS (5)
  - Inappropriate schedule of product discontinuation [Unknown]
  - Hypertension [Unknown]
  - Vitamin D deficiency [Unknown]
  - Pulmonary embolism [Unknown]
  - Pain in extremity [Unknown]
